FAERS Safety Report 8790075 (Version 1)
Quarter: 2012Q4

REPORT INFORMATION
  Report Type: 
  Country: US (occurrence: US)
  Receive Date: 20120917
  Receipt Date: 20120917
  Transmission Date: 20130627
  Serious: Yes (Other)
  Sender: FDA-Public Use
  Company Number: US-PFIZER INC-2012228573

PATIENT
  Sex: Female

DRUGS (1)
  1. EFFEXOR [Suspect]
     Dosage: UNK

REACTIONS (3)
  - Hernia [Not Recovered/Not Resolved]
  - Micturition disorder [Not Recovered/Not Resolved]
  - Pain [Not Recovered/Not Resolved]
